FAERS Safety Report 11820490 (Version 2)
Quarter: 2017Q4

REPORT INFORMATION
  Report Type: Spontaneous
  Country: US (occurrence: US)
  Receive Date: 20151210
  Receipt Date: 20171010
  Transmission Date: 20180320
  Serious: No
  Sender: FDA-Public Use
  Company Number: US-JNJFOC-20150511760

PATIENT
  Age: 72 Year
  Sex: Male

DRUGS (20)
  1. ALBUTEROL. [Concomitant]
     Active Substance: ALBUTEROL
  2. NORMAL SALINE [Concomitant]
     Active Substance: SODIUM CHLORIDE
  3. IMBRUVICA [Suspect]
     Active Substance: IBRUTINIB
     Indication: CHRONIC LYMPHOCYTIC LEUKAEMIA
     Route: 048
     Dates: start: 20140802
  4. CENTRUM SILVER [Concomitant]
     Active Substance: MINERALS\VITAMINS
  5. IMBRUVICA [Suspect]
     Active Substance: IBRUTINIB
     Indication: CHRONIC LYMPHOCYTIC LEUKAEMIA
     Route: 048
     Dates: start: 20140730
  6. IPRATROPIUM [Concomitant]
     Active Substance: IPRATROPIUM
  7. LISINOPRIL. [Concomitant]
     Active Substance: LISINOPRIL
  8. INSULIN [Concomitant]
     Active Substance: INSULIN NOS
  9. OMEPRAZOLE. [Concomitant]
     Active Substance: OMEPRAZOLE
  10. ALENDRONATE [Concomitant]
     Active Substance: ALENDRONATE SODIUM
  11. VITAMIN C [Concomitant]
     Active Substance: ASCORBIC ACID
  12. LANTUS [Concomitant]
     Active Substance: INSULIN GLARGINE
  13. MEGESTROL [Concomitant]
     Active Substance: MEGESTROL
  14. PREDNISONE. [Concomitant]
     Active Substance: PREDNISONE
  15. GRAPE SEED [Concomitant]
     Active Substance: HERBALS\VITIS VINIFERA SEED
  16. COD LIVER [Concomitant]
     Active Substance: COD LIVER OIL
  17. FISH OIL [Concomitant]
     Active Substance: FISH OIL
  18. BUPROPION. [Concomitant]
     Active Substance: BUPROPION
  19. SYMBICORT [Concomitant]
     Active Substance: BUDESONIDE\FORMOTEROL FUMARATE DIHYDRATE
  20. SIMVASTATIN. [Concomitant]
     Active Substance: SIMVASTATIN

REACTIONS (5)
  - Asthenia [Not Recovered/Not Resolved]
  - Feeling abnormal [Recovered/Resolved]
  - Chills [Unknown]
  - Stomatitis [Recovering/Resolving]
  - Fatigue [Recovered/Resolved]

NARRATIVE: CASE EVENT DATE: 201505
